FAERS Safety Report 12879841 (Version 5)
Quarter: 2017Q2

REPORT INFORMATION
  Report Type: Report from Study
  Country: US (occurrence: US)
  Receive Date: 20161025
  Receipt Date: 20170509
  Transmission Date: 20170830
  Serious: Yes (Other)
  Sender: FDA-Public Use
  Company Number: PHEH2016US027496

PATIENT
  Age: 35 Year
  Sex: Female

DRUGS (2)
  1. GILENYA [Suspect]
     Active Substance: FINGOLIMOD HYDROCHLORIDE
     Dosage: UNK UNK, QD
     Route: 048
     Dates: start: 20160401
  2. GILENYA [Suspect]
     Active Substance: FINGOLIMOD HYDROCHLORIDE
     Indication: RELAPSING-REMITTING MULTIPLE SCLEROSIS
     Dosage: UNK UNK, QD
     Route: 048
     Dates: start: 20121001, end: 20160204

REACTIONS (17)
  - Dizziness [Recovering/Resolving]
  - Alcohol intolerance [Unknown]
  - Weight increased [Unknown]
  - Feeling abnormal [Unknown]
  - Multiple sclerosis [Unknown]
  - Optic neuritis [Unknown]
  - Band sensation [Unknown]
  - Paraesthesia [Unknown]
  - Disturbance in attention [Unknown]
  - Fatigue [Unknown]
  - Stress [Unknown]
  - Memory impairment [Unknown]
  - Sensitivity to weather change [Unknown]
  - Balance disorder [Recovering/Resolving]
  - Visual impairment [Unknown]
  - Lactose intolerance [Unknown]
  - Oral candidiasis [Unknown]

NARRATIVE: CASE EVENT DATE: 20170424
